FAERS Safety Report 5823266-X (Version None)
Quarter: 2008Q3

REPORT INFORMATION
  Report Type: 
  Country: None (occurrence: None)
  Receive Date: 20080725
  Receipt Date: 20080721
  Transmission Date: 20090109
  Serious: Yes (Hospitalization, Other)
  Sender: FDA-Public Use
  Company Number: FR-BRISTOL-MYERS SQUIBB COMPANY-14271621

PATIENT
  Age: 38 Year
  Sex: Male

DRUGS (6)
  1. ABILIFY [Suspect]
     Indication: PSYCHOTIC DISORDER
     Dosage: 24APR08-29APR08(6DAYS);05-MAY-2008 TO 04-JUN-2008(31DAYS)
     Route: 048
     Dates: start: 20080424, end: 20080604
  2. RISPERDAL CONSTA [Suspect]
     Indication: PSYCHOTIC DISORDER
     Route: 030
     Dates: start: 20070601, end: 20080609
  3. TERCIAN [Concomitant]
     Dosage: 75 MG/D INITIATED ON 30-MAR-2008, THEN 100 MG/D, THEN 500 MG/D FROM 16-JUN-2008.
     Dates: start: 20080330
  4. DEPAKOTE [Concomitant]
     Dosage: 100 MG/D UNTIL 17-APR-2008
     Dates: end: 20080531
  5. LEPTICUR [Concomitant]
  6. CLONAZEPAM [Concomitant]
     Dates: start: 20080531

REACTIONS (3)
  - FALL [None]
  - RENAL FAILURE [None]
  - RHABDOMYOLYSIS [None]
